FAERS Safety Report 7312521-2 (Version None)
Quarter: 2011Q1

REPORT INFORMATION
  Report Type: 
  Country: None (occurrence: None)
  Receive Date: 20110224
  Receipt Date: 20110224
  Transmission Date: 20110831
  Serious: Yes (Hospitalization)
  Sender: FDA-Public Use
  Company Number: GB-ELI_LILLY_AND_COMPANY-GB201007005518

PATIENT
  Sex: Female
  Weight: 57 kg

DRUGS (11)
  1. PEMETREXED [Suspect]
     Indication: MESOTHELIOMA
     Dosage: 500 MG, UNKNOWN
     Route: 042
     Dates: start: 20090929
  2. PEMETREXED [Suspect]
     Dosage: 500 MG/M2, UNKNOWN
     Route: 042
     Dates: start: 20100112
  3. VANCOMYCIN [Concomitant]
     Indication: INFECTION
     Dosage: UNK, UNKNOWN
     Route: 042
     Dates: start: 20100117, end: 20100117
  4. PEGFILGRASTIM [Concomitant]
     Dates: start: 20100113
  5. OTHER PHARMA COMPANY INV DRUG [Suspect]
     Indication: MESOTHELIOMA
     Dosage: 2 D/F, EVERY 21 DAYS
     Route: 042
     Dates: start: 20090929, end: 20091229
  6. CISPLATIN [Suspect]
     Indication: MESOTHELIOMA
     Dosage: UNK,
     Route: 065
     Dates: start: 20090929
  7. CISPLATIN [Suspect]
     Dosage: 4 D/F, AUC
     Route: 065
     Dates: start: 20100112
  8. TAMIFLU [Concomitant]
     Indication: INFLUENZA
     Dosage: 75 MG, 1 IN 1 DAY
     Route: 048
     Dates: start: 20100117, end: 20100118
  9. VANCOMYCIN [Concomitant]
     Dosage: 1 G, DAILY (1/D)
     Route: 042
  10. ACETAMINOPHEN [Concomitant]
     Dosage: UNK, UNKNOWN
     Route: 065
  11. ACETAMINOPHEN [Concomitant]
     Dosage: 650 MG, UNK

REACTIONS (5)
  - FATIGUE [None]
  - PYREXIA [None]
  - NEUTROPENIA [None]
  - MUSCULOSKELETAL CHEST PAIN [None]
  - DYSPNOEA [None]
